FAERS Safety Report 7988472-7 (Version None)
Quarter: 2011Q4

REPORT INFORMATION
  Report Type: 
  Country: None (occurrence: None)
  Receive Date: 20111216
  Receipt Date: 20111213
  Transmission Date: 20120403
  Serious: Yes (Hospitalization)
  Sender: FDA-Public Use
  Company Number: FR-PFIZER INC-2011303125

PATIENT
  Age: 6 Year
  Sex: Male

DRUGS (1)
  1. PEDIATRIC ADVIL [Suspect]

REACTIONS (2)
  - URTICARIA [None]
  - OEDEMA [None]
